FAERS Safety Report 25215035 (Version 1)
Quarter: 2025Q2

REPORT INFORMATION
  Report Type: Spontaneous
  Country: CA (occurrence: CA)
  Receive Date: 20250418
  Receipt Date: 20250418
  Transmission Date: 20250716
  Serious: Yes (Other)
  Sender: ACCORD
  Company Number: None

PATIENT
  Age: 75 Year
  Sex: Female

DRUGS (5)
  1. PACLITAXEL [Suspect]
     Active Substance: PACLITAXEL
     Indication: Neoplasm malignant
     Route: 042
  2. BENADRYL [Concomitant]
     Active Substance: DIPHENHYDRAMINE HYDROCHLORIDE
  3. DEXAMETHASONE [Concomitant]
     Active Substance: DEXAMETHASONE
  4. FAMOTIDINE [Concomitant]
     Active Substance: FAMOTIDINE
  5. HYDROCORTISONE [Concomitant]
     Active Substance: HYDROCORTISONE

REACTIONS (5)
  - Flushing [Unknown]
  - Micturition urgency [Unknown]
  - Defaecation urgency [Unknown]
  - Paraesthesia [Unknown]
  - Pruritus [Unknown]
